FAERS Safety Report 12266999 (Version 1)
Quarter: 2016Q2

REPORT INFORMATION
  Report Type: Spontaneous
  Country: US (occurrence: None)
  Receive Date: 20160413
  Receipt Date: 20160413
  Transmission Date: 20160815
  Serious: Yes (Life-Threatening, Hospitalization)
  Sender: FDA-Public Use
  Company Number: None

PATIENT
  Age: 69 Year
  Sex: Male
  Weight: 84.3 kg

DRUGS (3)
  1. HURRICAINE [Suspect]
     Active Substance: BENZOCAINE
     Indication: LOCAL ANAESTHESIA
     Route: 049
     Dates: start: 20151216, end: 20151216
  2. HURRICAINE [Suspect]
     Active Substance: BENZOCAINE
     Indication: ENDOSCOPY
     Route: 049
     Dates: start: 20151216, end: 20151216
  3. LIDOCAINE VISCOUS [Concomitant]
     Active Substance: LIDOCAINE HYDROCHLORIDE

REACTIONS (9)
  - Type 2 diabetes mellitus [None]
  - Electrocardiogram abnormal [None]
  - Unmasking of previously unidentified disease [None]
  - Chest pain [None]
  - Methaemoglobinaemia [None]
  - Electrocardiogram ST segment depression [None]
  - Arteriosclerosis coronary artery [None]
  - Hypoxia [None]
  - Hypertension [None]

NARRATIVE: CASE EVENT DATE: 20151216
